FAERS Safety Report 10084423 (Version 4)
Quarter: 2014Q2

REPORT INFORMATION
  Report Type: Spontaneous
  Country: CN (occurrence: CN)
  Receive Date: 20140417
  Receipt Date: 20140604
  Transmission Date: 20141212
  Serious: Yes (Life-Threatening, Hospitalization)
  Sender: FDA-Public Use
  Company Number: CN-NOVOPROD-406505

PATIENT
  Age: 66 Year
  Sex: Female
  Weight: 62 kg

DRUGS (1)
  1. NOVOMIX 30 PENFILL [Suspect]
     Indication: TYPE 2 DIABETES MELLITUS
     Dosage: 14 U, BID
     Route: 065
     Dates: start: 201403, end: 20140411

REACTIONS (4)
  - Anaphylactic shock [Recovered/Resolved]
  - Upper respiratory tract infection [Unknown]
  - Injection site rash [Recovered/Resolved]
  - Blood glucose increased [Not Recovered/Not Resolved]
